FAERS Safety Report 6162671-1 (Version None)
Quarter: 2009Q2

REPORT INFORMATION
  Report Type: 
  Country: None (occurrence: None)
  Receive Date: 20090421
  Receipt Date: 20081230
  Transmission Date: 20091009
  Serious: No
  Sender: FDA-Public Use
  Company Number: US-ASTRAZENECA-2008UW29006

PATIENT
  Age: 61 Year
  Sex: Male

DRUGS (2)
  1. CASODEX [Suspect]
     Indication: PROSTATE CANCER METASTATIC
     Dosage: UNKNOWN
     Route: 048
  2. LUPRON [Concomitant]
     Indication: PROSTATE CANCER METASTATIC

REACTIONS (1)
  - METASTASIS [None]
